FAERS Safety Report 25147078 (Version 3)
Quarter: 2025Q2

REPORT INFORMATION
  Report Type: Spontaneous
  Country: US (occurrence: US)
  Receive Date: 20250401
  Receipt Date: 20250527
  Transmission Date: 20250716
  Serious: Yes (Other)
  Sender: BIOGEN
  Company Number: US-BIOGEN-2025BI01305897

PATIENT
  Age: 31 Year
  Sex: Female

DRUGS (2)
  1. TECFIDERA [Suspect]
     Active Substance: DIMETHYL FUMARATE
     Indication: Multiple sclerosis
     Route: 050
     Dates: start: 20250307
  2. TECFIDERA [Suspect]
     Active Substance: DIMETHYL FUMARATE
     Route: 050

REACTIONS (21)
  - Seizure [Unknown]
  - Feeling abnormal [Unknown]
  - Hypophagia [Unknown]
  - Discomfort [Unknown]
  - Migraine [Unknown]
  - Insomnia [Unknown]
  - Pyrexia [Unknown]
  - Decreased appetite [Unknown]
  - Fatigue [Unknown]
  - Irritability [Unknown]
  - Somnolence [Unknown]
  - Drug intolerance [Unknown]
  - Concussion [Unknown]
  - Post concussion syndrome [Unknown]
  - Fall [Recovered/Resolved]
  - Head injury [Unknown]
  - Spinal meningeal cyst [Unknown]
  - Multiple sclerosis [Unknown]
  - Vomiting [Unknown]
  - Hypersensitivity [Recovered/Resolved]
  - Nausea [Unknown]

NARRATIVE: CASE EVENT DATE: 20250322
